FAERS Safety Report 8095537-0 (Version None)
Quarter: 2012Q1

REPORT INFORMATION
  Report Type: 
  Country: None (occurrence: None)
  Receive Date: 20120129
  Receipt Date: 20111228
  Transmission Date: 20120608
  Serious: No
  Sender: FDA-Public Use
  Company Number: US-ABBOTT-11P-163-0887768-00

PATIENT
  Age: 53 Year
  Sex: Female

DRUGS (11)
  1. TRAZODONE HCL [Concomitant]
     Indication: INSOMNIA
     Dosage: EACH NIGHT
     Route: 048
  2. SIMVASTATIN [Concomitant]
     Indication: BLOOD CHOLESTEROL INCREASED
     Dosage: DAILY
     Route: 048
  3. LYRICA [Concomitant]
     Indication: PRODUCT USED FOR UNKNOWN INDICATION
     Dosage: DAILY
     Route: 048
  4. ZOLOFT [Concomitant]
     Indication: DEPRESSION
     Dosage: DAILY
     Route: 048
  5. HUMIRA [Suspect]
     Indication: CROHN'S DISEASE
     Dates: start: 20090101
  6. HUMALOG [Concomitant]
     Route: 050
  7. GLIPIZIDE [Concomitant]
     Indication: DIABETES MELLITUS
     Dosage: DAILY
     Route: 048
  8. LISINOPRIL [Concomitant]
     Indication: HYPERTENSION
     Dosage: DAILY
     Route: 048
  9. HUMIRA [Suspect]
     Dosage: RESTARTED
     Dates: start: 20111201
  10. HUMALOG [Concomitant]
     Indication: DIABETES MELLITUS
     Dosage: 75/25
     Route: 050
  11. HUMALOG [Concomitant]

REACTIONS (4)
  - INJECTION SITE PAIN [None]
  - DISCOMFORT [None]
  - INJECTION SITE ERYTHEMA [None]
  - INJECTION SITE NODULE [None]
